FAERS Safety Report 14991746 (Version 4)
Quarter: 2019Q4

REPORT INFORMATION
  Report Type: Report from Study
  Country: US (occurrence: US)
  Receive Date: 20180608
  Receipt Date: 20191209
  Transmission Date: 20200122
  Serious: Yes (Hospitalization, Other)
  Sender: FDA-Public Use
  Company Number: US-TAKEDA-2018TUS018854

PATIENT
  Age: 43 Year
  Sex: Male

DRUGS (6)
  1. MORPHINE SULFATE. [Concomitant]
     Active Substance: MORPHINE SULFATE
     Dosage: UNK
  2. LOPERAMIDE HCL [Concomitant]
     Active Substance: LOPERAMIDE HYDROCHLORIDE
     Dosage: UNK
  3. OMEPRAZOLE. [Concomitant]
     Active Substance: OMEPRAZOLE
     Dosage: UNK
  4. MORPHINE SULFATE. [Concomitant]
     Active Substance: MORPHINE SULFATE
     Dosage: UNK
  5. PONATINIB [Suspect]
     Active Substance: PONATINIB
     Indication: CHRONIC MYELOID LEUKAEMIA
     Dosage: 45 MILLIGRAM, QD
     Route: 048
     Dates: start: 20180605
  6. FOLIC ACID. [Concomitant]
     Active Substance: FOLIC ACID
     Dosage: UNK

REACTIONS (10)
  - Diarrhoea [Unknown]
  - Diabetic gangrene [Unknown]
  - Anal incontinence [Unknown]
  - Blood count abnormal [Unknown]
  - Arthralgia [Unknown]
  - White blood cell count increased [Unknown]
  - Back pain [Unknown]
  - Philadelphia chromosome positive [Unknown]
  - Pain in extremity [Unknown]
  - Bile acid malabsorption [Unknown]

NARRATIVE: CASE EVENT DATE: 201905
